FAERS Safety Report 25617689 (Version 5)
Quarter: 2025Q4

REPORT INFORMATION
  Report Type: Spontaneous
  Country: US (occurrence: US)
  Receive Date: 20250729
  Receipt Date: 20251103
  Transmission Date: 20260117
  Serious: No
  Sender: PFIZER
  Company Number: US-PFIZER INC-202500150380

PATIENT
  Age: 13 Year
  Sex: Female

DRUGS (2)
  1. NGENLA [Suspect]
     Active Substance: SOMATROGON-GHLA
     Dosage: 24 MG, WEEKLY
     Dates: start: 20250430
  2. NGENLA [Suspect]
     Active Substance: SOMATROGON-GHLA
     Dosage: 25.4 MG, WEEKLY

REACTIONS (3)
  - Injection site pain [Recovering/Resolving]
  - Swelling [Recovering/Resolving]
  - Incorrect dose administered [Unknown]

NARRATIVE: CASE EVENT DATE: 20250430
